FAERS Safety Report 5781098-5 (Version None)
Quarter: 2008Q2

REPORT INFORMATION
  Report Type: 
  Country: None (occurrence: None)
  Receive Date: 20080620
  Receipt Date: 20080610
  Transmission Date: 20081010
  Serious: Yes (Life-Threatening)
  Sender: FDA-Public Use
  Company Number: FR-PFIZER INC-2008050034

PATIENT
  Sex: Male

DRUGS (4)
  1. LYRICA [Suspect]
     Indication: ANXIETY
     Dates: start: 20080527, end: 20080606
  2. NORSET [Suspect]
     Indication: ANXIETY
     Dates: start: 20080527, end: 20080606
  3. EQUANIL [Concomitant]
  4. ALL OTHER THERAPEUTIC PRODUCTS [Concomitant]

REACTIONS (2)
  - MALAISE [None]
  - STATUS EPILEPTICUS [None]
